FAERS Safety Report 15641189 (Version 2)
Quarter: 2018Q4

REPORT INFORMATION
  Report Type: Spontaneous
  Country: JP (occurrence: JP)
  Receive Date: 20181120
  Receipt Date: 20181216
  Transmission Date: 20190205
  Serious: Yes (Hospitalization)
  Sender: FDA-Public Use
  Company Number: JP-COLLEGIUM PHARMACEUTICAL, INC.-JP-2018COL014490

PATIENT

DRUGS (8)
  1. TRAMADOL HYDROCHLORIDE. [Concomitant]
     Active Substance: TRAMADOL HYDROCHLORIDE
     Indication: CANCER PAIN
     Dosage: UNK
  2. TAPENTADOL EXTENDED RELEASE [Suspect]
     Active Substance: TAPENTADOL
     Indication: CANCER PAIN
     Dosage: 25 MG, BID
     Route: 048
     Dates: start: 20170908, end: 20180208
  3. MAGNESIUM OXIDE. [Concomitant]
     Active Substance: MAGNESIUM OXIDE
     Indication: CONSTIPATION
     Dosage: UNK
  4. MAGMITT [Concomitant]
     Active Substance: MAGNESIUM OXIDE
     Indication: PRODUCT USED FOR UNKNOWN INDICATION
     Dosage: UNK
     Dates: start: 20170824, end: 20180212
  5. TRAMAL [Concomitant]
     Active Substance: TRAMADOL
     Indication: PRODUCT USED FOR UNKNOWN INDICATION
     Dosage: UNK
     Dates: start: 20170908, end: 20180212
  6. NOVAMIN                            /00013301/ [Concomitant]
     Active Substance: PROCHLORPERAZINE
     Indication: PRODUCT USED FOR UNKNOWN INDICATION
     Dosage: UNK
     Dates: start: 20170908, end: 20170918
  7. PROCHLORPERAZINE MALEATE. [Concomitant]
     Active Substance: PROCHLORPERAZINE MALEATE
     Indication: PROPHYLAXIS
     Dosage: UNK
  8. MULTIPLE VITAMINS [Concomitant]
     Active Substance: VITAMINS
     Indication: PARENTERAL NUTRITION
     Dosage: UNK

REACTIONS (2)
  - Vomiting [Recovering/Resolving]
  - Hepatic encephalopathy [Unknown]

NARRATIVE: CASE EVENT DATE: 20180208
